FAERS Safety Report 18034119 (Version 1)
Quarter: 2020Q3

REPORT INFORMATION
  Report Type: Spontaneous
  Country: US (occurrence: US)
  Receive Date: 20200716
  Receipt Date: 20200716
  Transmission Date: 20201103
  Serious: No
  Sender: FDA-Public Use
  Company Number: US-LYNE LABORATORIES INC.-2087441

PATIENT
  Age: 4 Month
  Sex: Female

DRUGS (1)
  1. CYPROHEPTADINE HYDROCHLORIDE. [Suspect]
     Active Substance: CYPROHEPTADINE HYDROCHLORIDE
     Route: 048
     Dates: start: 20190510

REACTIONS (1)
  - Rash [Unknown]
